FAERS Safety Report 21023539 (Version 1)
Quarter: 2022Q2

REPORT INFORMATION
  Report Type: Report from Study
  Country: US (occurrence: US)
  Receive Date: 20220629
  Receipt Date: 20220629
  Transmission Date: 20220721
  Serious: Yes (Hospitalization, Other)
  Sender: FDA-Public Use
  Company Number: US-BRISTOL-MYERS SQUIBB COMPANY-2022-063321

PATIENT
  Age: 73 Year
  Sex: Female
  Weight: 78 kg

DRUGS (1)
  1. NIVOLUMAB [Suspect]
     Active Substance: NIVOLUMAB
     Indication: Lymphoma
     Route: 042
     Dates: start: 20220310, end: 20220310

REACTIONS (6)
  - Fatigue [Not Recovered/Not Resolved]
  - COVID-19 [Unknown]
  - Diarrhoea [Unknown]
  - Sepsis [Unknown]
  - Pneumocystis jirovecii pneumonia [Unknown]
  - Respiratory failure [Unknown]

NARRATIVE: CASE EVENT DATE: 20220525
